FAERS Safety Report 5533132-5 (Version None)
Quarter: 2007Q4

REPORT INFORMATION
  Report Type: 
  Country: None (occurrence: None)
  Receive Date: 20071130
  Receipt Date: 20071130
  Transmission Date: 20080405
  Serious: Yes (Other)
  Sender: FDA-Public Use
  Company Number: None

PATIENT
  Sex: Male
  Weight: 81.6475 kg

DRUGS (1)
  1. CHANTIX [Suspect]
     Indication: SMOKING CESSATION THERAPY
     Dosage: 1X DAILY  PO
     Route: 048
     Dates: start: 20070601, end: 20071030

REACTIONS (6)
  - AGGRESSION [None]
  - HYPERTENSION [None]
  - NERVOUS SYSTEM DISORDER [None]
  - PERSONALITY CHANGE [None]
  - PHYSICAL ABUSE [None]
  - VERBAL ABUSE [None]
